FAERS Safety Report 8882077 (Version 1)
Quarter: 2012Q4

REPORT INFORMATION
  Report Type: 
  Country: DE (occurrence: DE)
  Receive Date: 20121102
  Receipt Date: 20121102
  Transmission Date: 20130627
  Serious: Yes (Other)
  Sender: FDA-Public Use
  Company Number: DE-EISAI INC-E7273-00343-SPO-DE

PATIENT
  Sex: Male

DRUGS (1)
  1. TARGRETIN [Suspect]
     Dosage: UNKNOWN
     Route: 048
     Dates: start: 201110

REACTIONS (4)
  - Cholecystitis [Unknown]
  - Abdominal discomfort [Unknown]
  - Leukocytosis [Recovered/Resolved]
  - Gallbladder perforation [None]
